FAERS Safety Report 6318719-4 (Version None)
Quarter: 2009Q3

REPORT INFORMATION
  Report Type: 
  Country: None (occurrence: None)
  Receive Date: 20090819
  Receipt Date: 20090810
  Transmission Date: 20100115
  Serious: Yes (Disabling)
  Sender: FDA-Public Use
  Company Number: 2009-01342

PATIENT
  Age: 76 Year
  Sex: Male
  Weight: 58 kg

DRUGS (12)
  1. VELCADE [Suspect]
     Indication: MULTIPLE MYELOMA
     Dosage: 1.6 MG, INTRAVENOUS
     Route: 042
     Dates: start: 20090324, end: 20090324
  2. DECADRON [Concomitant]
  3. SULFAMETHOXAZOLE AND TRIMETHOPRIM [Concomitant]
  4. FLUCONAZOLE [Concomitant]
  5. LENDORM [Concomitant]
  6. PURSENNID (SENNA LEAF) [Concomitant]
  7. GASMOTIN (MOSAPRIDE CITRATE) [Concomitant]
  8. MAGNESIUM OXIDE (MAGNESIUM OXIDE) [Concomitant]
  9. LANSOPRAZOLE [Concomitant]
  10. DIOVAN [Concomitant]
  11. PLAVIX [Concomitant]
  12. APRINDINE (APRINDINE) [Concomitant]

REACTIONS (6)
  - ABDOMINAL PAIN [None]
  - DELUSIONAL PERCEPTION [None]
  - EXTRADURAL HAEMATOMA [None]
  - MONOPLEGIA [None]
  - PLATELET COUNT DECREASED [None]
  - SPINAL CORD HAEMORRHAGE [None]
